FAERS Safety Report 6426489-4 (Version None)
Quarter: 2009Q4

REPORT INFORMATION
  Report Type: 
  Country: None (occurrence: None)
  Receive Date: 20091030
  Receipt Date: 20091022
  Transmission Date: 20100525
  Serious: Yes (Hospitalization)
  Sender: FDA-Public Use
  Company Number: 2009AL006773

PATIENT
  Age: 48 Year
  Sex: Female

DRUGS (3)
  1. MIRTAZAPINE [Suspect]
     Dosage: 60 MG;
  2. QUETIAPINE [Concomitant]
  3. OLANZAPINE [Concomitant]

REACTIONS (3)
  - GRAND MAL CONVULSION [None]
  - STATUS EPILEPTICUS [None]
  - TREATMENT NONCOMPLIANCE [None]
